FAERS Safety Report 20638104 (Version 1)
Quarter: 2022Q1

REPORT INFORMATION
  Report Type: Spontaneous
  Country: IN (occurrence: IN)
  Receive Date: 20220325
  Receipt Date: 20220325
  Transmission Date: 20220424
  Serious: Yes (Hospitalization, Other)
  Sender: FDA-Public Use
  Company Number: IN-NOVARTISPH-NVSC2019IN016711

PATIENT
  Age: 28 Year
  Sex: Male

DRUGS (22)
  1. SIMULECT [Suspect]
     Active Substance: BASILIXIMAB
     Indication: Renal transplant
     Dosage: 20 MG
     Route: 042
     Dates: start: 20190912, end: 20190916
  2. SIMULECT [Suspect]
     Active Substance: BASILIXIMAB
     Dosage: 20 MG
     Route: 065
  3. MYFORTIC [Suspect]
     Active Substance: MYCOPHENOLATE SODIUM
     Indication: Product used for unknown indication
     Dosage: 1 DOSAGE FORM, TID (360 MG) (8AM-2PM-8AM)
     Route: 065
  4. BASILIXIMAB [Concomitant]
     Active Substance: BASILIXIMAB
     Indication: Product used for unknown indication
     Dosage: 1 DOSAGE FORM (40 MG)
     Route: 065
  5. METHYLPREDNISOLONE [Concomitant]
     Active Substance: METHYLPREDNISOLONE
     Indication: Product used for unknown indication
     Dosage: 1 DOSAGE FORM(1.5 G)
     Route: 065
  6. METHYLPREDNISOLONE [Concomitant]
     Active Substance: METHYLPREDNISOLONE
     Dosage: 1.875 G
     Route: 065
  7. CIPROFLOXACIN [Concomitant]
     Active Substance: CIPROFLOXACIN
     Indication: Product used for unknown indication
     Dosage: UNK
     Route: 065
  8. MERO [Concomitant]
     Indication: Product used for unknown indication
     Dosage: UNK
     Route: 065
  9. TIGER [Concomitant]
     Indication: Product used for unknown indication
     Dosage: UNK
     Route: 065
  10. MOXOVAS [Concomitant]
     Indication: Product used for unknown indication
     Dosage: 1 DOSAGE FORM, BID (0.2 MG)
     Route: 065
  11. LIQUID [Concomitant]
     Active Substance: TROLAMINE SALICYLATE
     Indication: Product used for unknown indication
     Dosage: 6 TO 7 LITRES
     Route: 065
  12. TACROLIMUS [Concomitant]
     Active Substance: TACROLIMUS
     Indication: Product used for unknown indication
     Dosage: 1 DOSAGE FORM, BID (3.5 MG) (08AM-08PM)
     Route: 065
  13. PREDNISOLONE [Concomitant]
     Active Substance: PREDNISOLONE
     Indication: Product used for unknown indication
     Dosage: 1 DOSAGE FORM, QD (30 MG) (9AM)
     Route: 065
  14. SEPTRA DS [Concomitant]
     Active Substance: SULFAMETHOXAZOLE\TRIMETHOPRIM
     Indication: Product used for unknown indication
     Dosage: UNK (1/2)
     Route: 065
  15. AMLODIPINE BESYLATE [Concomitant]
     Active Substance: AMLODIPINE BESYLATE
     Indication: Product used for unknown indication
     Dosage: 1 DOSAGE FORM, QD (5 MG)
     Route: 065
  16. PROLOMET [Concomitant]
     Indication: Product used for unknown indication
     Dosage: 1 DOSAGE FORM, QD (PROLOMET XL)
     Route: 065
  17. CANDID [Concomitant]
     Indication: Product used for unknown indication
     Dosage: MOUTH PAINT 4 DROPS TID
     Route: 065
  18. RANITIDINE HYDROCHLORIDE [Concomitant]
     Active Substance: RANITIDINE HYDROCHLORIDE
     Indication: Product used for unknown indication
     Dosage: BEFORE FOOD BID
     Route: 065
  19. CALCIUM CARBONATE\CHOLECALCIFEROL [Concomitant]
     Active Substance: CALCIUM CARBONATE\CHOLECALCIFEROL
     Indication: Product used for unknown indication
     Dosage: 1 DOSAGE FORM, BID (500 MG)
     Route: 065
  20. LEVETIRACETAM [Concomitant]
     Active Substance: LEVETIRACETAM
     Indication: Product used for unknown indication
     Dosage: 1 DOSAGE FORM, BID (500 MG)
     Route: 065
  21. ONDERO [Concomitant]
     Indication: Product used for unknown indication
     Dosage: 1 DOSAGE FORM, QD (2.5 MG)
     Route: 065
  22. T-BACT [Concomitant]
     Indication: Product used for unknown indication
     Dosage: UNK AS ADVICED BID X 1WEEK
     Route: 065

REACTIONS (11)
  - Kidney transplant rejection [Unknown]
  - Congenital renal disorder [Unknown]
  - Diabetes mellitus [Unknown]
  - Complications of transplanted kidney [Unknown]
  - Renal tubular injury [Unknown]
  - Drug-induced liver injury [Recovered/Resolved]
  - Pseudomonas infection [Unknown]
  - Allergic bronchitis [Unknown]
  - Cytomegalovirus test positive [Unknown]
  - Klebsiella infection [Unknown]
  - Urinary tract infection [Unknown]

NARRATIVE: CASE EVENT DATE: 20190924
